FAERS Safety Report 18211486 (Version 1)
Quarter: 2020Q3

REPORT INFORMATION
  Report Type: Spontaneous
  Country: FR (occurrence: FR)
  Receive Date: 20200831
  Receipt Date: 20200831
  Transmission Date: 20201103
  Serious: Yes (Hospitalization)
  Sender: FDA-Public Use
  Company Number: FR-TEVA-2020-FR-1821089

PATIENT
  Age: 54 Year
  Sex: Female
  Weight: 113 kg

DRUGS (4)
  1. AMLOR 5 MG, GELULE [Suspect]
     Active Substance: AMLODIPINE BESYLATE
     Indication: HYPERTENSION
     Dosage: 5MG
     Route: 048
     Dates: end: 20140308
  2. MICARDISPLUS 80 MG/25 MG, COMPRIME [Suspect]
     Active Substance: HYDROCHLOROTHIAZIDE\TELMISARTAN
     Indication: HYPERTENSION
     Dosage: 80MG
     Route: 048
     Dates: start: 201312, end: 20140308
  3. LEVOTHYROX [Concomitant]
     Active Substance: LEVOTHYROXINE
  4. ATENOLOL. [Suspect]
     Active Substance: ATENOLOL
     Indication: HYPERTENSION
     Dosage: 25MG
     Route: 048
     Dates: end: 20140308

REACTIONS (3)
  - Hypotension [Recovered/Resolved]
  - Hyponatraemia [Recovered/Resolved]
  - Hypokalaemia [Recovered/Resolved]

NARRATIVE: CASE EVENT DATE: 20140303
